FAERS Safety Report 15693614 (Version 4)
Quarter: 2021Q1

REPORT INFORMATION
  Report Type: Spontaneous
  Country: US (occurrence: US)
  Receive Date: 20181206
  Receipt Date: 20210326
  Transmission Date: 20210419
  Serious: No
  Sender: FDA-Public Use
  Company Number: US-ELI_LILLY_AND_COMPANY-US201812001983

PATIENT
  Age: 51 Year
  Sex: Female

DRUGS (4)
  1. HUMULIN R [Suspect]
     Active Substance: INSULIN HUMAN
     Dosage: 7 U, PRN
     Route: 058
  2. HUMULIN R [Suspect]
     Active Substance: INSULIN HUMAN
     Dosage: 7 U, PRN
     Route: 058
  3. LANTUS [Concomitant]
     Active Substance: INSULIN GLARGINE
     Indication: DIABETES MELLITUS
  4. HUMULIN R [Suspect]
     Active Substance: INSULIN HUMAN
     Indication: DIABETES MELLITUS
     Dosage: 7 U, PRN
     Route: 058
     Dates: start: 2010

REACTIONS (14)
  - Headache [Unknown]
  - Blood glucose increased [Recovered/Resolved]
  - Sinusitis [Unknown]
  - Cystitis [Unknown]
  - Drug ineffective [Unknown]
  - Illness [Recovered/Resolved]
  - Blood glucose decreased [Unknown]
  - Incorrect product administration duration [Unknown]
  - Expired product administered [Unknown]
  - Illness [Unknown]
  - Dizziness [Recovered/Resolved]
  - Dizziness [Unknown]
  - Nasopharyngitis [Unknown]
  - Blood glucose increased [Unknown]

NARRATIVE: CASE EVENT DATE: 20181203
